FAERS Safety Report 15113761 (Version 2)
Quarter: 2018Q3

REPORT INFORMATION
  Report Type: Spontaneous
  Country: US (occurrence: US)
  Receive Date: 20180706
  Receipt Date: 20180709
  Transmission Date: 20181010
  Serious: No
  Sender: FDA-Public Use
  Company Number: US-PFIZER INC-2018270038

PATIENT
  Age: 56 Year
  Sex: Male
  Weight: 113 kg

DRUGS (2)
  1. MORPHINE SULFATE. [Suspect]
     Active Substance: MORPHINE SULFATE
     Indication: MUSCLE SPASMS
     Dosage: 1 MG, UNK
     Dates: start: 20150318
  2. BUPIVACAINE HCL [Suspect]
     Active Substance: BUPIVACAINE HYDROCHLORIDE
     Indication: MUSCLE SPASMS
     Dosage: 10 MG, UNK
     Dates: start: 20150318

REACTIONS (2)
  - Eye pain [Not Recovered/Not Resolved]
  - Headache [Not Recovered/Not Resolved]

NARRATIVE: CASE EVENT DATE: 20150617
